FAERS Safety Report 8580787-7 (Version None)
Quarter: 2012Q3

REPORT INFORMATION
  Report Type: 
  Country: None (occurrence: None)
  Receive Date: 20120809
  Receipt Date: 20120801
  Transmission Date: 20120928
  Serious: No
  Sender: FDA-Public Use
  Company Number: US-BIOGENIDEC-2012BI029002

PATIENT
  Age: 56 Year
  Sex: Female

DRUGS (3)
  1. AVONEX [Suspect]
     Indication: MULTIPLE SCLEROSIS
     Route: 030
     Dates: start: 20120624, end: 20120701
  2. AVONEX [Suspect]
     Route: 030
     Dates: start: 20120722, end: 20120722
  3. SOLU-MEDROL [Concomitant]
     Indication: MULTIPLE SCLEROSIS
     Route: 042

REACTIONS (7)
  - ABASIA [None]
  - INJECTION SITE ERYTHEMA [None]
  - INJECTION SITE REACTION [None]
  - BALANCE DISORDER [None]
  - DRUG DOSE OMISSION [None]
  - COORDINATION ABNORMAL [None]
  - GENERAL PHYSICAL HEALTH DETERIORATION [None]
